FAERS Safety Report 6260251-0 (Version None)
Quarter: 2009Q3

REPORT INFORMATION
  Report Type: 
  Country: None (occurrence: None)
  Receive Date: 20090708
  Receipt Date: 20090701
  Transmission Date: 20100115
  Serious: Yes (Other)
  Sender: FDA-Public Use
  Company Number: IN-WATSON-2009-04093

PATIENT
  Sex: Female
  Weight: 104.3 kg

DRUGS (5)
  1. TRELSTAR DEPOT [Suspect]
     Indication: BREAST CANCER
     Dosage: 3.75 ML, Q 28 DAYS
     Route: 030
  2. AROMASIN [Suspect]
     Indication: BREAST CANCER
     Dosage: 25 MG, DAILY
     Route: 048
     Dates: start: 20090227
  3. AMBIEN [Concomitant]
     Indication: SLEEP DISORDER
     Dosage: UNK
     Route: 065
  4. LEXAPRO [Concomitant]
     Indication: ANXIETY
     Dosage: UNK
     Route: 065
  5. PRILOSEC [Concomitant]
     Indication: DYSPEPSIA
     Dosage: UNK
     Route: 065

REACTIONS (9)
  - EYE DISORDER [None]
  - HEADACHE [None]
  - MACULAR HOLE [None]
  - OCCIPITAL NEURALGIA [None]
  - PAIN [None]
  - RETINAL DETACHMENT [None]
  - RETINOPATHY [None]
  - SPINAL OSTEOARTHRITIS [None]
  - VISION BLURRED [None]
